FAERS Safety Report 4480331-X (Version None)
Quarter: 2004Q3

REPORT INFORMATION
  Report Type: 
  Country: None (occurrence: None)
  Receive Date: 20040923
  Receipt Date: 20040707
  Transmission Date: 20050211
  Serious: No
  Sender: FDA-Public Use
  Company Number: USA040568007

PATIENT
  Age: 80 Year
  Sex: Female

DRUGS (1)
  1. FORTEO [Suspect]
     Indication: OSTEOPOROSIS
     Dosage: 20 UG/ 1 DAY
     Dates: start: 20040320

REACTIONS (6)
  - ASTHENIA [None]
  - BALANCE DISORDER [None]
  - DECREASED APPETITE [None]
  - DEMENTIA ALZHEIMER'S TYPE [None]
  - DISORIENTATION [None]
  - INSOMNIA [None]
